FAERS Safety Report 18061505 (Version 2)
Quarter: 2020Q3

REPORT INFORMATION
  Report Type: Spontaneous
  Country: US (occurrence: US)
  Receive Date: 20200723
  Receipt Date: 20200827
  Transmission Date: 20201103
  Serious: Yes (Other)
  Sender: FDA-Public Use
  Company Number: US-INTRA-CELLULAR THERAPIES, INC.-2020ICT00048

PATIENT
  Age: 42 Year
  Sex: Male

DRUGS (10)
  1. ZOFRAN [Concomitant]
     Active Substance: ONDANSETRON HYDROCHLORIDE
  2. CLONAZEPAM. [Concomitant]
     Active Substance: CLONAZEPAM
     Dosage: 5 UNK
  3. FISH OIL [Concomitant]
     Active Substance: FISH OIL
  4. TEMAZEPAM. [Concomitant]
     Active Substance: TEMAZEPAM
  5. CAPLYTA [Suspect]
     Active Substance: LUMATEPERONE
     Indication: SCHIZOPHRENIA
     Dosage: UNK
     Dates: start: 20200618, end: 20200707
  6. VENLAFAXINE [Concomitant]
     Active Substance: VENLAFAXINE HYDROCHLORIDE
  7. BENZTROPINE. [Concomitant]
     Active Substance: BENZTROPINE
     Dosage: 1 MG, 2X/DAY
  8. GABAPENTIN. [Concomitant]
     Active Substance: GABAPENTIN
  9. METOPROLOL. [Concomitant]
     Active Substance: METOPROLOL
  10. TRAMADOL. [Concomitant]
     Active Substance: TRAMADOL

REACTIONS (9)
  - Hallucination [Recovered/Resolved]
  - Emotional disorder [Recovered/Resolved]
  - Memory impairment [Recovered/Resolved]
  - Dysgraphia [Recovered/Resolved]
  - Anger [Recovered/Resolved]
  - Tremor [Recovered/Resolved]
  - Fall [Recovered/Resolved]
  - Gait disturbance [Recovered/Resolved]
  - Hypersomnia [Recovered/Resolved]

NARRATIVE: CASE EVENT DATE: 2020
